FAERS Safety Report 9852015 (Version 1)
Quarter: 2013Q4

REPORT INFORMATION
  Report Type: Spontaneous
  Country: US (occurrence: None)
  Receive Date: 20131127
  Receipt Date: 20131127
  Transmission Date: 20140711
  Serious: No
  Sender: FDA-Public Use
  Company Number: 223198LEO

PATIENT
  Age: 62 Year
  Sex: Male

DRUGS (1)
  1. PICATO (INGENOL MEBUTATE) (0.015 %, GEL) [Suspect]
     Indication: ACTINIC KERATOSIS
     Dosage: ENTIRE FOREHEAD
     Dates: start: 20130809, end: 20130811

REACTIONS (4)
  - Application site scab [None]
  - Application site exfoliation [None]
  - Drug administration error [None]
  - Drug administered at inappropriate site [None]
